FAERS Safety Report 6735807-9 (Version None)
Quarter: 2010Q2

REPORT INFORMATION
  Report Type: 
  Country: None (occurrence: None)
  Receive Date: 20100520
  Receipt Date: 20100520
  Transmission Date: 20101027
  Serious: Yes (Life-Threatening, Other)
  Sender: FDA-Public Use
  Company Number: None

PATIENT
  Age: 28 Year
  Sex: Male
  Weight: 136.0791 kg

DRUGS (2)
  1. NUVIGIL [Suspect]
     Indication: ATTENTION DEFICIT/HYPERACTIVITY DISORDER
     Dosage: 250 MG 1 TIME DAILY PO
     Route: 048
     Dates: start: 20100415, end: 20100518
  2. NUVIGIL [Suspect]
     Indication: SOMNOLENCE
     Dosage: 250 MG 1 TIME DAILY PO
     Route: 048
     Dates: start: 20100415, end: 20100518

REACTIONS (6)
  - BRADYPHRENIA [None]
  - COGNITIVE DISORDER [None]
  - DRUG EFFECT DELAYED [None]
  - HYPOREFLEXIA [None]
  - INSOMNIA [None]
  - PRODUCT SUBSTITUTION ISSUE [None]
